FAERS Safety Report 20932021 (Version 1)
Quarter: 2022Q2

REPORT INFORMATION
  Report Type: Report from Study
  Country: CN (occurrence: CN)
  Receive Date: 20220608
  Receipt Date: 20220608
  Transmission Date: 20220721
  Serious: Yes (Other)
  Sender: FDA-Public Use
  Company Number: CN-PFIZER INC-202200773506

PATIENT
  Age: 23 Year
  Sex: Male

DRUGS (5)
  1. METHOTREXATE SODIUM [Suspect]
     Active Substance: METHOTREXATE SODIUM
     Indication: Leukaemia
     Dosage: D1, 15, 3000 MG/M2, DAILY
  2. CYCLOPHOSPHAMIDE [Concomitant]
     Active Substance: CYCLOPHOSPHAMIDE
     Dosage: D1, 750MG/M2
  3. CYTARABINE [Concomitant]
     Active Substance: CYTARABINE
     Dosage: 2 G/(M2 TIMES), D1-2
  4. MERCAPTOPURINE [Concomitant]
     Active Substance: MERCAPTOPURINE
     Dosage: D1-7, 75MG/M2, DAILY
  5. MERCAPTOPURINE [Concomitant]
     Active Substance: MERCAPTOPURINE
     Dosage: D1-7, 15-21, 75MG/M2, DAILY

REACTIONS (1)
  - Cerebral venous sinus thrombosis [Recovering/Resolving]
